FAERS Safety Report 21330176 (Version 1)
Quarter: 2022Q3

REPORT INFORMATION
  Report Type: Spontaneous
  Country: US (occurrence: US)
  Receive Date: 20220913
  Receipt Date: 20220913
  Transmission Date: 20221027
  Serious: No
  Sender: FDA-Public Use
  Company Number: US-009507513-2208USA008573

PATIENT
  Age: 72 Year
  Sex: Male

DRUGS (8)
  1. BELSOMRA [Suspect]
     Active Substance: SUVOREXANT
     Indication: Sleep disorder therapy
     Dosage: 10 MILLIGRAM, PATIENT TOOK 1 DOSE
     Route: 048
     Dates: start: 20220703, end: 20220703
  2. PRINIVIL [Concomitant]
     Active Substance: LISINOPRIL
  3. OXYCODONE [Concomitant]
     Active Substance: OXYCODONE
     Dosage: 7.5 MILLIGRAM, EVERY 4-6 HOURS
  4. OXYCODONE [Concomitant]
     Active Substance: OXYCODONE
     Dosage: 60 MILLIGRAMS, 60 MG AS NEEDED BUT HE ONLY TAKES A ^BITE^ OF A TABLET, SO THINKS HE WAS TAKING ABOUT
  5. AMBIEN [Concomitant]
     Active Substance: ZOLPIDEM TARTRATE
     Indication: Sleep disorder therapy
     Dosage: UNK
     Dates: end: 20220702
  6. AMBIEN [Concomitant]
     Active Substance: ZOLPIDEM TARTRATE
     Dosage: UNK
     Dates: start: 202207
  7. CLONAZEPAM [Concomitant]
     Active Substance: CLONAZEPAM
  8. HYDROXYZINE [Concomitant]
     Active Substance: HYDROXYZINE HYDROCHLORIDE
     Indication: Hypersensitivity

REACTIONS (1)
  - Nightmare [Unknown]

NARRATIVE: CASE EVENT DATE: 20220703
